FAERS Safety Report 7139353-2 (Version None)
Quarter: 2010Q4

REPORT INFORMATION
  Report Type: 
  Country: None (occurrence: None)
  Receive Date: 20101206
  Receipt Date: 20101108
  Transmission Date: 20110411
  Serious: No
  Sender: FDA-Public Use
  Company Number: US-BAYER-2010-001034

PATIENT
  Sex: Female
  Weight: 67 kg

DRUGS (9)
  1. ALEVE [Suspect]
     Indication: MYALGIA
     Dosage: 220 MG, OM
     Dates: start: 20101008
  2. DOXAZOSIN [Concomitant]
  3. TOPROL-XL [Concomitant]
  4. DIOVAN HCT [Concomitant]
  5. ASPIRIN [Concomitant]
  6. OTHER OPHTHALMOLOGICALS [Concomitant]
  7. VITAMIN TAB [Concomitant]
  8. FISH OIL [Concomitant]
  9. CRANBERRY [Concomitant]

REACTIONS (1)
  - DIARRHOEA [None]
